FAERS Safety Report 23735254 (Version 2)
Quarter: 2024Q3

REPORT INFORMATION
  Report Type: Spontaneous
  Country: PE (occurrence: PE)
  Receive Date: 20240412
  Receipt Date: 20240717
  Transmission Date: 20241016
  Serious: Yes (Hospitalization, Other)
  Sender: AMGEN
  Company Number: PE-PFIZER INC-PV202400013452

PATIENT
  Age: 60 Year
  Sex: Female

DRUGS (1)
  1. ENBREL [Suspect]
     Active Substance: BENZYL ALCOHOL\ETANERCEPT
     Indication: Product used for unknown indication
     Dosage: UNK
     Route: 065
     Dates: end: 20231229

REACTIONS (4)
  - Thrombosis [Unknown]
  - Ulcer haemorrhage [Recovered/Resolved]
  - Localised infection [Unknown]
  - Infected skin ulcer [Unknown]
